FAERS Safety Report 19441920 (Version 1)
Quarter: 2021Q2

REPORT INFORMATION
  Report Type: Spontaneous
  Country: US (occurrence: US)
  Receive Date: 20210621
  Receipt Date: 20210621
  Transmission Date: 20210717
  Serious: Yes (Other)
  Sender: FDA-Public Use
  Company Number: US-GW PHARMA-202106USGW02926

PATIENT

DRUGS (2)
  1. SABRIL [Concomitant]
     Active Substance: VIGABATRIN
     Indication: SEIZURE
     Dosage: 1500 MILLIGRAM, BID (EVERY 12 HOURS)
     Route: 065
     Dates: start: 201906
  2. EPIDIOLEX [Suspect]
     Active Substance: CANNABIDIOL
     Indication: SEIZURE
     Dosage: 12.72 MG/KG/DAY, 300 MILLIGRAM, QD
     Dates: start: 201908

REACTIONS (1)
  - Loss of personal independence in daily activities [Unknown]
